FAERS Safety Report 21097540 (Version 1)
Quarter: 2022Q3

REPORT INFORMATION
  Report Type: Other
  Country: GB (occurrence: GB)
  Receive Date: 20220719
  Receipt Date: 20220719
  Transmission Date: 20221026
  Serious: No
  Sender: FDA-Public Use
  Company Number: None

PATIENT
  Age: 63 Year
  Sex: Female
  Weight: 76 kg

DRUGS (9)
  1. SERTRALINE [Suspect]
     Active Substance: SERTRALINE HYDROCHLORIDE
     Indication: Product used for unknown indication
     Dosage: 50 MILLIGRAM, (1-2 DAILY)
     Route: 048
     Dates: start: 20220614, end: 20220705
  2. HALOPERIDOL [Concomitant]
     Active Substance: HALOPERIDOL
     Indication: Nausea
     Dosage: UNK, PRN (1.5-2.5MG AS NEEDED 4 HOURLY )
     Route: 065
     Dates: start: 20220420, end: 20220518
  3. BUTYLSCOPOLAMINE BROMIDE [Concomitant]
     Active Substance: BUTYLSCOPOLAMINE BROMIDE
     Indication: Product used for unknown indication
     Dosage: 20 MILLIGRAM, PRN
     Route: 058
     Dates: start: 20220420, end: 20220518
  4. LACTULOSE [Concomitant]
     Active Substance: LACTULOSE
     Indication: Constipation
     Dosage: UNK, BID (10-15ML TWICE DAILY IF CONSTIPATED )
     Route: 065
     Dates: start: 20220413, end: 20220423
  5. LORAZEPAM [Concomitant]
     Active Substance: LORAZEPAM
     Indication: Anxiety
     Dosage: UNK, PRN (1/2-2 PRN FOR SEVERE DISTRESS/ANXIETY)
     Route: 065
     Dates: start: 20220511, end: 20220521
  6. LORAZEPAM [Concomitant]
     Active Substance: LORAZEPAM
     Indication: Stress
  7. MIDAZOLAM [Concomitant]
     Active Substance: MIDAZOLAM
     Indication: Product used for unknown indication
     Dosage: UNK, PRN (2.5-5MG AS REQUIRED HOURLY)
     Route: 058
     Dates: start: 20220420, end: 20220518
  8. MORPHINE SULFATE [Concomitant]
     Active Substance: MORPHINE SULFATE
     Indication: Product used for unknown indication
     Dosage: UNK, PRN (2.5-5MG EVERY 4-6 HOURS AS REQUIRED )
     Route: 058
     Dates: start: 20220420, end: 20220518
  9. WATER [Concomitant]
     Active Substance: WATER
     Indication: Product used for unknown indication
     Dosage: UNK, AS DIRECTED
     Route: 065
     Dates: start: 20220420, end: 20220518

REACTIONS (1)
  - Visual impairment [Recovered/Resolved]

NARRATIVE: CASE EVENT DATE: 20220705
